FAERS Safety Report 24391323 (Version 1)
Quarter: 2024Q4

REPORT INFORMATION
  Report Type: Report from Study
  Country: US (occurrence: US)
  Receive Date: 20241003
  Receipt Date: 20241003
  Transmission Date: 20250114
  Serious: Yes (Hospitalization, Other)
  Sender: GILEAD
  Company Number: US-GILEAD-2024-0689713

PATIENT
  Sex: Male

DRUGS (11)
  1. AZTREONAM LYSINE [Suspect]
     Active Substance: AZTREONAM LYSINE
     Indication: Cystic fibrosis
     Dosage: 75MG INHALED VIA NEBULIZER THREE TIMES DAILY FOR 28 DAYS
     Route: 055
     Dates: start: 20220928
  2. ALBUTEROL [Concomitant]
     Active Substance: ALBUTEROL
  3. ATROPINE SULFATE [Concomitant]
     Active Substance: ATROPINE SULFATE
  4. AZITHROMYCIN [Concomitant]
     Active Substance: AZITHROMYCIN
  5. BACLOFEN [Concomitant]
     Active Substance: BACLOFEN
  6. BUDESONIDE [Concomitant]
     Active Substance: BUDESONIDE
  7. IBUPROFEN [Concomitant]
     Active Substance: IBUPROFEN
  8. OSELTAMIVIR [Concomitant]
     Active Substance: OSELTAMIVIR
  9. PEDIALYTE [CITRIC ACID;GLUCOSE;POTASSIUM CHLORIDE;SODIUM CHLORIDE] [Concomitant]
  10. SODIUM CHLORIDE [Concomitant]
     Active Substance: SODIUM CHLORIDE
  11. TOBRAMYCIN [Concomitant]
     Active Substance: TOBRAMYCIN\TOBRAMYCIN SULFATE

REACTIONS (2)
  - COVID-19 [Unknown]
  - Pneumonia [Unknown]
